FAERS Safety Report 21342250 (Version 2)
Quarter: 2022Q3

REPORT INFORMATION
  Report Type: Other
  Country: US (occurrence: US)
  Receive Date: 20220916
  Receipt Date: 20220926
  Transmission Date: 20221026
  Serious: Yes (Other)
  Sender: FDA-Public Use
  Company Number: US-INTERCEPT-PM2022001041

PATIENT
  Sex: Female
  Weight: 111 kg

DRUGS (14)
  1. OCALIVA [Suspect]
     Active Substance: OBETICHOLIC ACID
     Indication: Primary biliary cholangitis
     Dosage: 5 MILLIGRAM, QD
     Route: 048
     Dates: start: 20220428, end: 20220526
  2. URSODIOL [Concomitant]
     Active Substance: URSODIOL
     Dosage: 750 MILLIGRAM, BID
  3. URSODIOL [Concomitant]
     Active Substance: URSODIOL
     Dosage: 750 MILLIGRAM, QD
  4. ASPIRIN [Concomitant]
     Active Substance: ASPIRIN
     Dosage: 81 MILLIGRAM, QD
     Route: 048
  5. ATORVASTATIN [Concomitant]
     Active Substance: ATORVASTATIN
     Dosage: 40 MILLIGRAM, QD
     Route: 048
  6. AZELASTINE [Concomitant]
     Active Substance: AZELASTINE
     Dosage: 137 MILLIGRAM, PRN
  7. VITAMIN D3 [Concomitant]
     Active Substance: CHOLECALCIFEROL
     Dosage: 2000 UNIT, 1 TABLET, QD
     Route: 048
  8. FERROUS SULPHATE [FERROUS SULFATE;FOLIC ACID] [Concomitant]
     Dosage: 325 MILLIGRAM, QD
     Route: 048
  9. FERROUS SULPHATE [FERROUS SULFATE;FOLIC ACID] [Concomitant]
     Dosage: 325 MILLIGRAM, QOD
     Route: 048
  10. LEVOTHYROXINE [Concomitant]
     Active Substance: LEVOTHYROXINE
     Dosage: 150 MICROGRAM, QD
     Route: 048
  11. LOSARTAN [Concomitant]
     Active Substance: LOSARTAN
     Dosage: 100 MILLIGRAM, QD
     Route: 048
  12. VITAMIN B12 [Concomitant]
     Active Substance: CYANOCOBALAMIN
     Dosage: 10000 MICROGRAM,  INJECTION QMO
  13. MONTELUKAST [Concomitant]
     Active Substance: MONTELUKAST SODIUM
     Dosage: 10 MILLIGRAM, QD
     Route: 048
  14. DOXYLAMINE [Concomitant]
     Active Substance: DOXYLAMINE

REACTIONS (8)
  - Nephrolithiasis [Unknown]
  - Pelvi-ureteric obstruction [Unknown]
  - Vomiting [Recovered/Resolved]
  - Hepatomegaly [Unknown]
  - Feeling abnormal [Unknown]
  - White blood cell count decreased [Unknown]
  - Blood alkaline phosphatase increased [Unknown]
  - Insurance issue [Not Recovered/Not Resolved]

NARRATIVE: CASE EVENT DATE: 20220101
